FAERS Safety Report 7810108-6 (Version None)
Quarter: 2011Q4

REPORT INFORMATION
  Report Type: 
  Country: None (occurrence: None)
  Receive Date: 20111012
  Receipt Date: 20111003
  Transmission Date: 20120403
  Serious: Yes (Hospitalization)
  Sender: FDA-Public Use
  Company Number: FR-JNJFOC-20111001308

PATIENT
  Age: 26 Year
  Sex: Female

DRUGS (2)
  1. REMICADE [Suspect]
     Indication: RHEUMATOID ARTHRITIS
     Dosage: 4TH INFUSION
     Route: 042
     Dates: start: 20110908
  2. REMICADE [Suspect]
     Route: 042
     Dates: start: 20110616

REACTIONS (7)
  - VOMITING [None]
  - TREMOR [None]
  - CYANOSIS [None]
  - INFUSION RELATED REACTION [None]
  - ABDOMINAL PAIN [None]
  - NAUSEA [None]
  - SUFFOCATION FEELING [None]
